FAERS Safety Report 8435063-X (Version None)
Quarter: 2012Q2

REPORT INFORMATION
  Report Type: 
  Country: None (occurrence: None)
  Receive Date: 20120614
  Receipt Date: 20120606
  Transmission Date: 20120825
  Serious: Yes (Other)
  Sender: FDA-Public Use
  Company Number: PHHY2011US15145

PATIENT
  Sex: Male

DRUGS (4)
  1. GLEEVEC [Suspect]
     Dosage: 300 MG, DAILY
     Route: 048
  2. OXYCONTIN [Concomitant]
  3. GLEEVEC [Suspect]
     Dosage: 300 MG, QD
     Route: 048
  4. GLEEVEC [Suspect]
     Indication: CHRONIC MYELOID LEUKAEMIA
     Dosage: 400 MG, DAILY
     Route: 048
     Dates: start: 20110120

REACTIONS (7)
  - NAUSEA [None]
  - PRURITUS [None]
  - SPINAL FRACTURE [None]
  - VOMITING [None]
  - DYSPEPSIA [None]
  - BACK INJURY [None]
  - ABDOMINAL DISCOMFORT [None]
